FAERS Safety Report 25813226 (Version 1)
Quarter: 2025Q3

REPORT INFORMATION
  Report Type: Spontaneous
  Country: CN (occurrence: CN)
  Receive Date: 20250917
  Receipt Date: 20250917
  Transmission Date: 20251021
  Serious: Yes (Other)
  Sender: PFIZER
  Company Number: CN-PFIZER INC-PV202500111386

PATIENT
  Age: 94 Year
  Sex: Female
  Weight: 40 kg

DRUGS (1)
  1. TIGECYCLINE [Suspect]
     Active Substance: TIGECYCLINE
     Indication: Pneumonia
     Dosage: 50 MG, 2X/DAY
     Route: 041
     Dates: start: 20250829, end: 20250911

REACTIONS (3)
  - Haemorrhage subcutaneous [Recovered/Resolved]
  - Puncture site haemorrhage [Recovered/Resolved]
  - Thrombin time prolonged [Recovered/Resolved]

NARRATIVE: CASE EVENT DATE: 20250911
